FAERS Safety Report 8587586-0 (Version None)
Quarter: 2012Q3

REPORT INFORMATION
  Report Type: 
  Country: None (occurrence: None)
  Receive Date: 20120810
  Receipt Date: 20120731
  Transmission Date: 20120928
  Serious: Yes (Other)
  Sender: FDA-Public Use
  Company Number: CHPA2012US017103

PATIENT
  Sex: Female

DRUGS (2)
  1. NICOTINE [Suspect]
     Indication: SMOKING CESSATION THERAPY
     Dosage: UNK, UNK
     Route: 062
  2. FOSAMAX [Suspect]
     Indication: OSTEOPOROSIS
     Dosage: UNK, UNK

REACTIONS (6)
  - LUNG NEOPLASM [None]
  - TOOTH FRACTURE [None]
  - STRESS [None]
  - NERVOUSNESS [None]
  - OSTEOPOROSIS [None]
  - TONGUE INJURY [None]
